FAERS Safety Report 4724763-0 (Version None)
Quarter: 2005Q3

REPORT INFORMATION
  Report Type: 
  Country: None (occurrence: None)
  Receive Date: 20050726
  Receipt Date: 20050714
  Transmission Date: 20060218
  Serious: Yes (Disabling)
  Sender: FDA-Public Use
  Company Number: GB-GLAXOSMITHKLINE-B0387707A

PATIENT
  Age: 38 Year
  Sex: Female

DRUGS (1)
  1. ONDANSETRON [Suspect]
     Indication: NAUSEA
     Dosage: 4MG UNKNOWN
     Route: 042
     Dates: start: 20050622, end: 20050622

REACTIONS (1)
  - DYSKINESIA [None]
